FAERS Safety Report 11642163 (Version 2)
Quarter: 2016Q2

REPORT INFORMATION
  Report Type: Spontaneous
  Country: CA (occurrence: CA)
  Receive Date: 20151019
  Receipt Date: 20160512
  Transmission Date: 20160815
  Serious: Yes (Other)
  Sender: FDA-Public Use
  Company Number: CA-009507513-1510CAN007223

PATIENT
  Age: 67 Year
  Sex: Male

DRUGS (1)
  1. TEMODAL [Suspect]
     Active Substance: TEMOZOLOMIDE
     Indication: OLIGOASTROCYTOMA
     Dosage: 420 MG, DAILY X 5 DAYS
     Route: 048
     Dates: start: 20150212

REACTIONS (3)
  - Neoplasm progression [Unknown]
  - Subdural haematoma [Unknown]
  - Off label use [Unknown]

NARRATIVE: CASE EVENT DATE: 2015
